FAERS Safety Report 14656602 (Version 1)
Quarter: 2018Q1

REPORT INFORMATION
  Report Type: Spontaneous
  Country: US (occurrence: US)
  Receive Date: 20180319
  Receipt Date: 20180319
  Transmission Date: 20180509
  Serious: Yes (Other)
  Sender: FDA-Public Use
  Company Number: US-SUNOVION-2018SUN001008

PATIENT
  Sex: Female
  Weight: 113.38 kg

DRUGS (4)
  1. ZONISAMIDE. [Concomitant]
     Active Substance: ZONISAMIDE
     Indication: SEIZURE
     Dosage: 100 MG, BID
     Route: 048
  2. LUNESTA [Suspect]
     Active Substance: ESZOPICLONE
     Indication: INSOMNIA
     Dosage: 2 MG, HS
     Route: 048
     Dates: start: 20180213, end: 20180305
  3. LYRICA [Concomitant]
     Active Substance: PREGABALIN
     Indication: NERVOUS SYSTEM DISORDER
     Dosage: 300 MG, BID
     Route: 048
  4. ZONISAMIDE. [Concomitant]
     Active Substance: ZONISAMIDE
     Indication: GENERALISED TONIC-CLONIC SEIZURE

REACTIONS (9)
  - Seizure [Unknown]
  - Irritability [Unknown]
  - Screaming [Unknown]
  - Fall [Unknown]
  - Fatigue [Unknown]
  - Snoring [Unknown]
  - Dizziness [Unknown]
  - Drug ineffective [Unknown]
  - Insomnia [Unknown]
